FAERS Safety Report 10184298 (Version 1)
Quarter: 2014Q2

REPORT INFORMATION
  Report Type: Spontaneous
  Country: FR (occurrence: FR)
  Receive Date: 20140520
  Receipt Date: 20140520
  Transmission Date: 20141212
  Serious: Yes (Hospitalization)
  Sender: FDA-Public Use
  Company Number: FR-GILEAD-2014-0102967

PATIENT
  Age: 63 Year
  Sex: Male

DRUGS (3)
  1. TRUVADA [Suspect]
     Indication: HIV INFECTION
     Dosage: 1 DF, UNK
     Route: 048
     Dates: start: 20100416, end: 20140423
  2. TRUVADA [Suspect]
     Dosage: 1 DF, UNK
     Route: 048
     Dates: start: 201404
  3. INTELENCE [Suspect]
     Indication: HIV INFECTION
     Dosage: UNK
     Route: 048
     Dates: start: 20100416, end: 20140423

REACTIONS (1)
  - Thrombocytopenia [Unknown]
